FAERS Safety Report 26205036 (Version 1)
Quarter: 2025Q4

REPORT INFORMATION
  Report Type: Spontaneous
  Country: CN (occurrence: CN)
  Receive Date: 20251227
  Receipt Date: 20251227
  Transmission Date: 20260117
  Serious: Yes (Other)
  Sender: AMGEN
  Company Number: CN-AMGEN-CHNSP2025254803

PATIENT
  Age: 8 Year
  Sex: Male

DRUGS (2)
  1. BLINCYTO [Suspect]
     Active Substance: BLINATUMOMAB
     Indication: Acute lymphocytic leukaemia
     Dosage: 15 MICROGRAM INFUSION, (FREQUENCY: 1, DURATION OF REGIMEN: 1)
     Route: 040
     Dates: start: 20250928, end: 20251013
  2. BLINCYTO [Suspect]
     Active Substance: BLINATUMOMAB
     Dosage: 15 MICROGRAM INFUSION (FREQUENCY: 1, DURATION OF REGIMEN: 1)
     Route: 040
     Dates: start: 20251029, end: 20251111

REACTIONS (1)
  - CSF cell count increased [Not Recovered/Not Resolved]

NARRATIVE: CASE EVENT DATE: 20251015
